FAERS Safety Report 8912297 (Version 1)
Quarter: 2012Q4

REPORT INFORMATION
  Report Type: 
  Country: US (occurrence: US)
  Receive Date: 20121115
  Receipt Date: 20121115
  Transmission Date: 20130627
  Serious: Yes (Hospitalization)
  Sender: FDA-Public Use
  Company Number: US-PFIZER INC-2012282862

PATIENT
  Age: 87 Year
  Sex: Male

DRUGS (3)
  1. OXALIPLATIN [Suspect]
     Indication: SQUAMOUS CELL CARCINOMA OF OESOPHAGUS
     Dosage: Cyclic
     Route: 042
  2. FOLINIC ACID [Concomitant]
     Indication: SQUAMOUS CELL CARCINOMA OF OESOPHAGUS
     Dosage: Cyclic
     Route: 042
  3. FLUOROURACIL [Concomitant]
     Indication: SQUAMOUS CELL CARCINOMA OF OESOPHAGUS
     Dosage: Cyclic
     Route: 042

REACTIONS (5)
  - Extravasation [Recovered/Resolved]
  - Dyspnoea [Recovered/Resolved]
  - Chest pain [Recovered/Resolved]
  - Mediastinitis [Recovering/Resolving]
  - Pneumonitis [Unknown]
